FAERS Safety Report 14083156 (Version 1)
Quarter: 2017Q4

REPORT INFORMATION
  Report Type: Spontaneous
  Country: BR (occurrence: BR)
  Receive Date: 20171013
  Receipt Date: 20171013
  Transmission Date: 20180321
  Serious: Yes (Death, Hospitalization, Other)
  Sender: FDA-Public Use
  Company Number: BR-ASTELLAS-2017US041743

PATIENT
  Age: 94 Year
  Sex: Male

DRUGS (1)
  1. AMBISOME [Suspect]
     Active Substance: AMPHOTERICIN B
     Indication: MUCOCUTANEOUS LEISHMANIASIS
     Route: 042

REACTIONS (3)
  - Off label use [Unknown]
  - Renal failure [Fatal]
  - Sepsis [Fatal]
